FAERS Safety Report 21774844 (Version 1)
Quarter: 2022Q4

REPORT INFORMATION
  Report Type: Spontaneous
  Country: SE (occurrence: SE)
  Receive Date: 20221224
  Receipt Date: 20221224
  Transmission Date: 20230113
  Serious: Yes (Life-Threatening, Other)
  Sender: FDA-Public Use
  Company Number: SE-JNJFOC-20221251967

PATIENT
  Sex: Male

DRUGS (1)
  1. YONDELIS [Suspect]
     Active Substance: TRABECTEDIN
     Indication: Sarcoma
     Route: 042

REACTIONS (5)
  - Renal failure [Unknown]
  - Hepatic failure [Unknown]
  - Cardiac failure [Unknown]
  - Neutropenia [Unknown]
  - Thrombocytopenia [Unknown]
